FAERS Safety Report 7151612 (Version 4)
Quarter: 2020Q3

REPORT INFORMATION
  Report Type: Report from Study
  Country: BE (occurrence: BE)
  Receive Date: 20091016
  Receipt Date: 20100402
  Transmission Date: 20201105
  Serious: Yes (Hospitalization)
  Sender: FDA-Public Use
  Company Number: BE-WYE-H11589209

PATIENT
  Age: 62 Year
  Sex: Male
  Weight: 76 kg

DRUGS (12)
  1. TEMSIROLIMUS. [Suspect]
     Active Substance: TEMSIROLIMUS
     Route: 042
     Dates: start: 20091022
  2. BEVACIZUMAB. [Suspect]
     Active Substance: BEVACIZUMAB
     Dosage: NOT PROVIDED
     Route: 042
     Dates: start: 20091022
  3. BEVACIZUMAB. [Suspect]
     Active Substance: BEVACIZUMAB
     Route: 042
     Dates: start: 20090827, end: 20090903
  4. OMEPRAZOLE. [Concomitant]
     Active Substance: OMEPRAZOLE
     Dosage: NOT PROVIDED
     Dates: start: 20090521
  5. MEDROL [Concomitant]
     Active Substance: METHYLPREDNISOLONE
     Dosage: NOT PROVIDED
     Dates: start: 20090717
  6. PARACETAMOL [Concomitant]
     Active Substance: ACETAMINOPHEN
     Indication: PAIN
     Dosage: NOT PROVIDED
     Dates: start: 20091013
  7. CEFATRIZINE PROPYLENGLYCOLATE SULFATE [Concomitant]
     Dosage: NOT PROVIDED
     Dates: start: 20090806
  8. LIPITOR [Concomitant]
     Active Substance: ATORVASTATIN CALCIUM
     Indication: HYPERCHOLESTEROLAEMIA
     Dosage: NOT PROVIDED
  9. BEVACIZUMAB. [Suspect]
     Active Substance: BEVACIZUMAB
     Indication: RENAL CELL CARCINOMA
     Route: 042
     Dates: start: 20090617, end: 20090717
  10. TEMSIROLIMUS. [Suspect]
     Active Substance: TEMSIROLIMUS
     Indication: RENAL CELL CARCINOMA
     Route: 042
     Dates: start: 20090617, end: 20090903
  11. TEMSIROLIMUS. [Suspect]
     Active Substance: TEMSIROLIMUS
     Route: 042
     Dates: start: 20091001, end: 20091013
  12. BEVACIZUMAB. [Suspect]
     Active Substance: BEVACIZUMAB
     Route: 042
     Dates: start: 20091008, end: 20091008

REACTIONS (2)
  - Sinusitis [Recovered/Resolved]
  - Pyrexia [Recovered/Resolved]

NARRATIVE: CASE EVENT DATE: 20091013
